FAERS Safety Report 8063757-7 (Version None)
Quarter: 2012Q1

REPORT INFORMATION
  Report Type: 
  Country: None (occurrence: None)
  Receive Date: 20120123
  Receipt Date: 20120113
  Transmission Date: 20120608
  Serious: Yes (Hospitalization)
  Sender: FDA-Public Use
  Company Number: IT-TEVA-2011005900

PATIENT
  Sex: Male

DRUGS (7)
  1. OMEPRAZOLE [Concomitant]
  2. SULFAMETHOXAZOLE AND TRIMETHOPRIM [Concomitant]
  3. PHENOBARBITAL TAB [Concomitant]
  4. BENDAMUSTINE HCL POWDER [Suspect]
     Route: 042
  5. ALLOPURINOL [Concomitant]
  6. LAMIVUDINE [Concomitant]
  7. ACYCLOVIR [Concomitant]

REACTIONS (3)
  - WEIGHT DECREASED [None]
  - JAUNDICE [None]
  - DECREASED APPETITE [None]
